FAERS Safety Report 17967691 (Version 3)
Quarter: 2020Q3

REPORT INFORMATION
  Report Type: Spontaneous
  Country: US (occurrence: US)
  Receive Date: 20200701
  Receipt Date: 20200727
  Transmission Date: 20201103
  Serious: No
  Sender: FDA-Public Use
  Company Number: US-PFIZER INC-2020252135

PATIENT
  Age: 65 Year
  Sex: Female

DRUGS (1)
  1. IBRANCE [Suspect]
     Active Substance: PALBOCICLIB
     Dosage: 75 MG, CYCLIC
     Dates: start: 20191024, end: 2020

REACTIONS (7)
  - Pain in jaw [Unknown]
  - White blood cell count decreased [Unknown]
  - Neuralgia [Unknown]
  - Haematocrit decreased [Unknown]
  - Haemoglobin decreased [Unknown]
  - Procedural pain [Unknown]
  - Alveolar osteitis [Unknown]

NARRATIVE: CASE EVENT DATE: 2020
